FAERS Safety Report 20348555 (Version 1)
Quarter: 2022Q1

REPORT INFORMATION
  Report Type: Spontaneous
  Country: PL (occurrence: PL)
  Receive Date: 20220119
  Receipt Date: 20220119
  Transmission Date: 20220423
  Serious: Yes (Hospitalization, Other)
  Sender: FDA-Public Use
  Company Number: PL-BoehringerIngelheim-2022-BI-107154

PATIENT
  Age: 70 Year
  Sex: Male

DRUGS (2)
  1. OFEV [Suspect]
     Active Substance: NINTEDANIB
     Indication: Idiopathic pulmonary fibrosis
     Dates: start: 20211021, end: 202111
  2. OFEV [Suspect]
     Active Substance: NINTEDANIB
     Dates: start: 202111

REACTIONS (2)
  - Myocardial infarction [Unknown]
  - Electrocardiogram ST segment elevation [Unknown]

NARRATIVE: CASE EVENT DATE: 20211201
